FAERS Safety Report 18774089 (Version 1)
Quarter: 2021Q1

REPORT INFORMATION
  Report Type: Spontaneous
  Country: US (occurrence: US)
  Receive Date: 20210122
  Receipt Date: 20210122
  Transmission Date: 20210419
  Serious: Yes (Other)
  Sender: FDA-Public Use
  Company Number: None

PATIENT
  Age: 54 Year
  Sex: Female
  Weight: 92.25 kg

DRUGS (1)
  1. HUMIRA [Suspect]
     Active Substance: ADALIMUMAB
     Indication: RHEUMATOID ARTHRITIS
     Dosage: ?          OTHER FREQUENCY:2 WEEKS;?
     Route: 058

REACTIONS (4)
  - Headache [None]
  - Lupus-like syndrome [None]
  - Visual impairment [None]
  - Eye disorder [None]

NARRATIVE: CASE EVENT DATE: 20201204
